FAERS Safety Report 8575616-1 (Version None)
Quarter: 2012Q3

REPORT INFORMATION
  Report Type: 
  Country: None (occurrence: None)
  Receive Date: 20120807
  Receipt Date: 20120802
  Transmission Date: 20120928
  Serious: No
  Sender: FDA-Public Use
  Company Number: US-PFIZER INC-2012114384

PATIENT
  Age: 59 Year
  Sex: Male
  Weight: 90.703 kg

DRUGS (4)
  1. SERTRALINE HYDROCHLORIDE [Suspect]
     Indication: ANXIETY
     Dosage: 50 MG, 1X/DAY
     Route: 048
     Dates: start: 20120301, end: 20120101
  2. CLONAZEPAM [Suspect]
     Indication: ANXIETY
     Dosage: UNK
  3. SERTRALINE HYDROCHLORIDE [Suspect]
     Dosage: 350 MG, 1X/DAY
     Route: 048
     Dates: start: 20120101, end: 20120801
  4. SERTRALINE HYDROCHLORIDE [Suspect]
     Dosage: 400 MG, 1X/DAY
     Route: 048
     Dates: start: 20120802

REACTIONS (2)
  - DRUG INEFFECTIVE [None]
  - OVERDOSE [None]
